FAERS Safety Report 5319883-6 (Version None)
Quarter: 2007Q2

REPORT INFORMATION
  Report Type: 
  Country: None (occurrence: None)
  Receive Date: 20070509
  Receipt Date: 20070430
  Transmission Date: 20071010
  Serious: Yes (Hospitalization, Other)
  Sender: FDA-Public Use
  Company Number: CA-JNJFOC-20060305213

PATIENT
  Sex: Female
  Weight: 75 kg

DRUGS (3)
  1. REMICADE [Suspect]
     Indication: RHEUMATOID ARTHRITIS
     Dosage: TOTAL OF 24 INFUSIONS
     Route: 042
  2. POTASSIUM SUPPLEMENT [Concomitant]
  3. COLCHICINE [Concomitant]

REACTIONS (3)
  - ALVEOLITIS [None]
  - LUPUS-LIKE SYNDROME [None]
  - PLEURISY [None]
